FAERS Safety Report 10816548 (Version 1)
Quarter: 2015Q1

REPORT INFORMATION
  Report Type: Spontaneous
  Country: US (occurrence: US)
  Receive Date: 20150218
  Receipt Date: 20150218
  Transmission Date: 20150721
  Serious: Yes (Other)
  Sender: FDA-Public Use
  Company Number: US-PERRIGO-15US001782

PATIENT
  Sex: Male

DRUGS (1)
  1. PHENYLEPHRINE HYDROCHLORIDE 1% 648 [Suspect]
     Active Substance: PHENYLEPHRINE HYDROCHLORIDE
     Indication: NASAL CONGESTION
     Dosage: A FEW SPRAYS, QD
     Route: 045
     Dates: start: 201402

REACTIONS (3)
  - Anosmia [Unknown]
  - Incorrect drug administration duration [Unknown]
  - Sinus disorder [Unknown]

NARRATIVE: CASE EVENT DATE: 2014
